FAERS Safety Report 14403895 (Version 1)
Quarter: 2018Q1

REPORT INFORMATION
  Report Type: Spontaneous
  Country: FR (occurrence: FR)
  Receive Date: 20180117
  Receipt Date: 20180117
  Transmission Date: 20180509
  Serious: Yes (Hospitalization)
  Sender: FDA-Public Use
  Company Number: FR-TEVA-2018-FR-843397

PATIENT
  Age: 38 Year
  Sex: Female
  Weight: 52 kg

DRUGS (4)
  1. KETOPROFENE [Suspect]
     Active Substance: KETOPROFEN
     Indication: PAIN
     Route: 048
     Dates: start: 201702
  2. TERCIAN 40 MG/ML, SOLUTION BUVABLE EN GOUTTES [Interacting]
     Active Substance: CYAMEMAZINE
     Indication: MAJOR DEPRESSION
     Route: 048
     Dates: start: 20160301, end: 20170227
  3. HYDROCORTANCYL 2,5 POUR CENT, SUSPENSION INJECTABLE [Suspect]
     Active Substance: PREDNISOLONE ACETATE
     Indication: PAIN
     Route: 014
     Dates: start: 201702
  4. SEROPLEX 20 MG, COMPRIM? PELLICUL? S?CABLE [Interacting]
     Active Substance: ESCITALOPRAM OXALATE
     Indication: MAJOR DEPRESSION
     Route: 048
     Dates: start: 20160105

REACTIONS (2)
  - Drug interaction [Unknown]
  - Generalised tonic-clonic seizure [Recovered/Resolved with Sequelae]

NARRATIVE: CASE EVENT DATE: 20170227
